FAERS Safety Report 19960279 (Version 1)
Quarter: 2021Q4

REPORT INFORMATION
  Report Type: Report from Study
  Country: CA (occurrence: CA)
  Receive Date: 20211015
  Receipt Date: 20211015
  Transmission Date: 20220303
  Serious: Yes (Hospitalization, Other)
  Sender: FDA-Public Use
  Company Number: CA-TAKEDA-2021TUS061729

PATIENT
  Age: 61 Year
  Sex: Female

DRUGS (16)
  1. TEDUGLUTIDE [Suspect]
     Active Substance: TEDUGLUTIDE
     Indication: Short-bowel syndrome
     Dosage: 1.88 MILLIGRAM, QD
     Route: 065
     Dates: start: 20170707, end: 20170718
  2. TEDUGLUTIDE [Suspect]
     Active Substance: TEDUGLUTIDE
     Indication: Short-bowel syndrome
     Dosage: 1.88 MILLIGRAM, QD
     Route: 065
     Dates: start: 20170707, end: 20170718
  3. TEDUGLUTIDE [Suspect]
     Active Substance: TEDUGLUTIDE
     Indication: Short-bowel syndrome
     Dosage: 1.88 MILLIGRAM, QD
     Route: 065
     Dates: start: 20170707, end: 20170718
  4. TEDUGLUTIDE [Suspect]
     Active Substance: TEDUGLUTIDE
     Indication: Short-bowel syndrome
     Dosage: 1.88 MILLIGRAM, QD
     Route: 065
     Dates: start: 20170707, end: 20170718
  5. TEDUGLUTIDE [Suspect]
     Active Substance: TEDUGLUTIDE
     Dosage: 2.0 MILLIGRAM, QD
     Route: 065
     Dates: start: 20170718, end: 20200202
  6. TEDUGLUTIDE [Suspect]
     Active Substance: TEDUGLUTIDE
     Dosage: 2.0 MILLIGRAM, QD
     Route: 065
     Dates: start: 20170718, end: 20200202
  7. TEDUGLUTIDE [Suspect]
     Active Substance: TEDUGLUTIDE
     Dosage: 2.0 MILLIGRAM, QD
     Route: 065
     Dates: start: 20170718, end: 20200202
  8. TEDUGLUTIDE [Suspect]
     Active Substance: TEDUGLUTIDE
     Dosage: 2.0 MILLIGRAM, QD
     Route: 065
     Dates: start: 20170718, end: 20200202
  9. TEDUGLUTIDE [Suspect]
     Active Substance: TEDUGLUTIDE
     Dosage: 3.395 MILLIGRAM, QD
     Route: 065
     Dates: start: 20200202
  10. TEDUGLUTIDE [Suspect]
     Active Substance: TEDUGLUTIDE
     Dosage: 3.395 MILLIGRAM, QD
     Route: 065
     Dates: start: 20200202
  11. TEDUGLUTIDE [Suspect]
     Active Substance: TEDUGLUTIDE
     Dosage: 3.395 MILLIGRAM, QD
     Route: 065
     Dates: start: 20200202
  12. TEDUGLUTIDE [Suspect]
     Active Substance: TEDUGLUTIDE
     Dosage: 3.395 MILLIGRAM, QD
     Route: 065
     Dates: start: 20200202
  13. ZOVIRAX [Concomitant]
     Active Substance: ACYCLOVIR
     Indication: Condition aggravated
     Dosage: 5 PERCENT, 4-6 TIMES
     Route: 061
  14. Ketoderm [Concomitant]
     Indication: Rash
     Dosage: 2 PERCENT, PRN
     Route: 061
  15. CYANOCOBALAMIN [Concomitant]
     Active Substance: CYANOCOBALAMIN
     Indication: Vitamin B12 deficiency
     Dosage: 1000, MONTHLY
     Route: 030
  16. Centrum forte [Concomitant]
     Indication: Hypovitaminosis
     Dosage: 1 DOSAGE FORM, QD
     Route: 048

REACTIONS (4)
  - Anastomotic leak [Recovered/Resolved]
  - Cholecystectomy [Recovered/Resolved]
  - Jejunostomy [Recovered/Resolved]
  - Incisional hernia [Recovered/Resolved]

NARRATIVE: CASE EVENT DATE: 20191003
